FAERS Safety Report 8609627-4 (Version None)
Quarter: 2012Q3

REPORT INFORMATION
  Report Type: 
  Country: None (occurrence: None)
  Receive Date: 20120810
  Receipt Date: 20120810
  Transmission Date: 20120928
  Serious: Yes (Hospitalization)
  Sender: FDA-Public Use
  Company Number: None

PATIENT
  Sex: Female

DRUGS (2)
  1. PEG-INTRON [Suspect]
     Indication: HEPATITIS C
     Dosage: 120 MCG ONCE WEEKLY SQ
     Dates: start: 20120805
  2. PEG-INTRON [Suspect]
     Indication: HEPATITIS C
     Dosage: 120 MCG ONCE WEEKLY SQ
     Dates: start: 20120707

REACTIONS (5)
  - HAEMOGLOBIN DECREASED [None]
  - DIZZINESS [None]
  - NAUSEA [None]
  - VOMITING [None]
  - GAIT DISTURBANCE [None]
